FAERS Safety Report 9714621 (Version 4)
Quarter: 2014Q2

REPORT INFORMATION
  Report Type: Spontaneous
  Country: US (occurrence: US)
  Receive Date: 20131126
  Receipt Date: 20140403
  Transmission Date: 20141212
  Serious: Yes (Other)
  Sender: FDA-Public Use
  Company Number: US-TEVA-446761USA

PATIENT
  Sex: Female

DRUGS (7)
  1. METOCLOPRAMIDE [Suspect]
     Indication: COUGH
     Dosage: 40 MILLIGRAM DAILY;
     Dates: start: 2008, end: 2011
  2. METOCLOPRAMIDE [Suspect]
     Indication: GASTROOESOPHAGEAL REFLUX DISEASE
  3. ATENOLOL [Concomitant]
  4. RANITIDINE [Concomitant]
  5. WARFARIN [Concomitant]
  6. WELLBUTRIN [Concomitant]
  7. CYMBALTA [Concomitant]

REACTIONS (6)
  - Deafness unilateral [Not Recovered/Not Resolved]
  - Tardive dyskinesia [Not Recovered/Not Resolved]
  - Speech disorder [Not Recovered/Not Resolved]
  - Dysarthria [Not Recovered/Not Resolved]
  - Dyskinesia [Not Recovered/Not Resolved]
  - Dyskinesia [Not Recovered/Not Resolved]
